FAERS Safety Report 5877488-2 (Version None)
Quarter: 2008Q3

REPORT INFORMATION
  Report Type: 
  Country: None (occurrence: None)
  Receive Date: 20080909
  Receipt Date: 20080826
  Transmission Date: 20090109
  Serious: Yes (Life-Threatening, Hospitalization)
  Sender: FDA-Public Use
  Company Number: 2008002010

PATIENT
  Age: 57 Year
  Sex: Male
  Weight: 79.4 kg

DRUGS (7)
  1. ERLOTINIB(ERLOTINIB) (TABLET) (ERLOTINIB) [Suspect]
     Indication: OROPHARYNGEAL CANCER STAGE UNSPECIFIED
     Dosage: (150 MG, QD)  ORAL
     Route: 048
  2. BEVACIZUMAB(INJECTION FOR INFUSION) [Suspect]
     Dosage: (15 MG/KG, DAYS 1 AND 22), INTRAVENOUS
     Route: 042
  3. CARBOPLATIN [Suspect]
     Dosage: INTRAVENOUS
     Route: 042
  4. FLUOROURACIL [Suspect]
     Dosage: (200 MG/M2), INTRAVENOUS
     Route: 042
  5. PACLITAXEL [Suspect]
     Dosage: (200 MG/M2), INTRAVENOUS
     Route: 042
  6. RADIATION [Suspect]
  7. LEVOPHED [Suspect]

REACTIONS (21)
  - ACUTE ABDOMEN [None]
  - ACUTE RESPIRATORY FAILURE [None]
  - ALPHA HAEMOLYTIC STREPTOCOCCAL INFECTION [None]
  - ATELECTASIS [None]
  - ATRIOVENTRICULAR BLOCK FIRST DEGREE [None]
  - BLOOD CULTURE POSITIVE [None]
  - CULTURE WOUND POSITIVE [None]
  - HAEMATOCRIT DECREASED [None]
  - HAEMOGLOBIN DECREASED [None]
  - INTERNATIONAL NORMALISED RATIO INCREASED [None]
  - KLEBSIELLA INFECTION [None]
  - LUNG CONSOLIDATION [None]
  - PERICARDIAL EFFUSION [None]
  - POST PROCEDURAL HAEMORRHAGE [None]
  - PROTHROMBIN TIME PROLONGED [None]
  - PROTHROMBIN TIME SHORTENED [None]
  - PSEUDOMONAS INFECTION [None]
  - SPUTUM CULTURE POSITIVE [None]
  - STAPHYLOCOCCAL INFECTION [None]
  - SUBCUTANEOUS EMPHYSEMA [None]
  - TACHYCARDIA [None]
